FAERS Safety Report 25720955 (Version 1)
Quarter: 2025Q3

REPORT INFORMATION
  Report Type: Spontaneous
  Country: EU (occurrence: EU)
  Receive Date: 20250825
  Receipt Date: 20250825
  Transmission Date: 20251021
  Serious: Yes (Other)
  Sender: DR REDDYS
  Company Number: None

PATIENT
  Age: 13 Year
  Sex: Male

DRUGS (1)
  1. PREGABALIN [Suspect]
     Active Substance: PREGABALIN
     Indication: Product used for unknown indication
     Route: 048

REACTIONS (10)
  - Angina pectoris [Unknown]
  - Overdose [Unknown]
  - Toxicity to various agents [Unknown]
  - Somnolence [Unknown]
  - Dizziness [Unknown]
  - Tachycardia [Unknown]
  - Muscle twitching [Unknown]
  - Nausea [Unknown]
  - Abdominal pain upper [Unknown]
  - Accidental overdose [Unknown]
